FAERS Safety Report 8619210-2 (Version None)
Quarter: 2012Q3

REPORT INFORMATION
  Report Type: 
  Country: None (occurrence: None)
  Receive Date: 20120824
  Receipt Date: 20120820
  Transmission Date: 20120928
  Serious: Yes (Life-Threatening, Hospitalization)
  Sender: FDA-Public Use
  Company Number: JP-B.I. PHARMACEUTICALS,INC./RIDGEFIELD-2012-BP-15439NB

PATIENT
  Age: 76 Year
  Sex: Male
  Weight: 56.2 kg

DRUGS (10)
  1. PRADAXA [Suspect]
     Indication: CEREBRAL INFARCTION
     Dosage: 220 MG
     Route: 048
     Dates: start: 20120702, end: 20120708
  2. ALMARL [Concomitant]
     Dosage: 10 MCG
     Route: 048
  3. CEPHADOL [Concomitant]
     Dosage: 75 MG
     Route: 048
  4. LACTEC [Concomitant]
     Route: 065
  5. ADONA [Concomitant]
     Route: 042
  6. VALSARTAN  AND HYDROCHLOROTHIAZIDE [Concomitant]
     Route: 048
  7. ATELEC [Concomitant]
     Dosage: 10 MG
     Route: 048
  8. KETAS [Concomitant]
     Dosage: 30 MG
     Route: 048
  9. CEFMETAZON [Concomitant]
     Route: 065
  10. SUNRYTHM [Concomitant]
     Dosage: 50 MCG
     Route: 048

REACTIONS (6)
  - DEPRESSED LEVEL OF CONSCIOUSNESS [None]
  - MUSCULAR WEAKNESS [None]
  - INTESTINAL POLYP HAEMORRHAGE [None]
  - BACK PAIN [None]
  - SEPSIS [None]
  - BLOOD CREATINE PHOSPHOKINASE INCREASED [None]
